FAERS Safety Report 9982852 (Version 1)
Quarter: 2014Q1

REPORT INFORMATION
  Report Type: Report from Study
  Country: US (occurrence: US)
  Receive Date: 20140307
  Receipt Date: 20140307
  Transmission Date: 20141002
  Serious: No
  Sender: FDA-Public Use
  Company Number: US-ABBVIE-13P-163-1177009-00

PATIENT
  Age: 38 Year
  Sex: Male
  Weight: 181.6 kg

DRUGS (7)
  1. HUMIRA [Suspect]
     Indication: PSORIASIS
     Dates: start: 201310
  2. ZANTAC [Concomitant]
     Indication: GASTRIC DISORDER
  3. NAPROXEN [Concomitant]
     Indication: HEADACHE
  4. VITAMIN B COMPLEX [Concomitant]
     Indication: VITAMIN SUPPLEMENTATION
  5. VITAMIN C [Concomitant]
     Indication: VITAMIN SUPPLEMENTATION
  6. YEAST [Concomitant]
     Indication: VITAMIN SUPPLEMENTATION
  7. BIOTIN [Concomitant]
     Indication: VITAMIN SUPPLEMENTATION

REACTIONS (1)
  - Psoriasis [Not Recovered/Not Resolved]
